FAERS Safety Report 7518451-5 (Version None)
Quarter: 2011Q2

REPORT INFORMATION
  Report Type: 
  Country: None (occurrence: None)
  Receive Date: 20110602
  Receipt Date: 20110519
  Transmission Date: 20111010
  Serious: Yes (Death, Hospitalization)
  Sender: FDA-Public Use
  Company Number: FR-JNJFOC-20110510622

PATIENT
  Age: 20 Year
  Sex: Female

DRUGS (3)
  1. SURGAM [Suspect]
     Indication: PRODUCT USED FOR UNKNOWN INDICATION
     Dosage: ONCE 1 DAY
     Route: 048
     Dates: start: 20101217, end: 20101217
  2. ACETAMINOPHEN AND TRAMADOL HCL [Suspect]
     Indication: PRODUCT USED FOR UNKNOWN INDICATION
     Dosage: ONCE FOR 1 DAY
     Route: 048
     Dates: start: 20101217, end: 20101217
  3. TRIMEBUTINE MALEATE [Suspect]
     Indication: PRODUCT USED FOR UNKNOWN INDICATION
     Dosage: ONCE 1 DAY
     Route: 048
     Dates: start: 20101217, end: 20101217

REACTIONS (4)
  - CARDIAC ARREST [None]
  - MULTIPLE DRUG OVERDOSE INTENTIONAL [None]
  - DRUG EXPOSURE DURING PREGNANCY [None]
  - GRAND MAL CONVULSION [None]
